FAERS Safety Report 5168525-1 (Version None)
Quarter: 2006Q4

REPORT INFORMATION
  Report Type: 
  Country: None (occurrence: None)
  Receive Date: 20061201
  Receipt Date: 20060727
  Transmission Date: 20070319
  Serious: Yes (Hospitalization)
  Sender: FDA-Public Use
  Company Number: 2006079194

PATIENT
  Age: 38 Year
  Sex: Female
  Weight: 46 kg

DRUGS (6)
  1. SILDENAFIL CITRATE [Suspect]
     Indication: PULMONARY HYPERTENSION
     Dosage: 75 MG, ORAL
     Route: 048
     Dates: start: 20020828
  2. LASIX [Concomitant]
  3. WARFARIN SODIUM [Concomitant]
  4. DORNER (BERAPROST SODIUM) [Concomitant]
  5. ALDACTONE [Concomitant]
  6. ISOSORBIDE DINITRATE [Concomitant]

REACTIONS (2)
  - CONDITION AGGRAVATED [None]
  - PULMONARY HYPERTENSION [None]
